FAERS Safety Report 9483837 (Version 2)
Quarter: 2013Q3

REPORT INFORMATION
  Report Type: Spontaneous
  Country: CA (occurrence: CA)
  Receive Date: 20130828
  Receipt Date: 20130828
  Transmission Date: 20140515
  Serious: Yes (Hospitalization, Other)
  Sender: FDA-Public Use
  Company Number: CA-AMGEN-KDL296777

PATIENT
  Age: 67 Year
  Sex: Female
  Weight: 98 kg

DRUGS (17)
  1. ENBREL [Suspect]
     Indication: RHEUMATOID ARTHRITIS
     Dosage: UNK UNK, QWK
     Route: 065
     Dates: start: 20080628
  2. FENTANYL [Concomitant]
     Dosage: 75 MG, QD
     Route: 048
  3. ISMN [Concomitant]
     Dosage: UNK UNK, QD
     Route: 047
  4. HYDROXYCHLOROQUINE SULFATE [Concomitant]
  5. HYDROCHLOROTHIAZIDE [Concomitant]
  6. AMLODIPINE BESILATE [Concomitant]
  7. ROSUVASTATIN CALCIUM [Concomitant]
     Dosage: 20 MG, QD
  8. ACETYLSALICYLIC ACID [Concomitant]
     Dosage: 80 MG, QD
     Route: 048
  9. DOCUSATE [Concomitant]
  10. FOLIC ACID [Concomitant]
     Dosage: UNK UNK, QD
     Route: 048
  11. ACETAMINOPHEN [Concomitant]
     Dosage: UNK UNK, PRN
     Route: 048
  12. ESOMEPRAZOLE MAGNESIUM [Concomitant]
     Dosage: UNK UNK, QD
     Route: 048
  13. ALENDRONATE SODIUM [Concomitant]
     Dosage: 70 MG, QD
     Route: 048
  14. ERGOCALCIFEROL [Concomitant]
     Dosage: UNK UNK, QD
     Route: 048
  15. FUROSEMIDE [Concomitant]
     Dosage: UNK UNK, QD
     Route: 048
  16. UNSPECIFIED MEDICATION [Concomitant]
  17. CLOPIDOGREL BISULFATE [Concomitant]
     Dosage: 75 MG, QD
     Route: 048

REACTIONS (8)
  - Cardiac disorder [Unknown]
  - Knee arthroplasty [Unknown]
  - Drug ineffective [Unknown]
  - Blood pressure abnormal [Unknown]
  - Heart rate decreased [Unknown]
  - Injection site bruising [Unknown]
  - Injection site reaction [Unknown]
  - Feeling abnormal [Recovering/Resolving]
